FAERS Safety Report 7373008-4 (Version None)
Quarter: 2011Q1

REPORT INFORMATION
  Report Type: 
  Country: None (occurrence: None)
  Receive Date: 20110324
  Receipt Date: 20110309
  Transmission Date: 20110831
  Serious: Yes (Other)
  Sender: FDA-Public Use
  Company Number: PHHY2011LB19372

PATIENT
  Sex: Male
  Weight: 74 kg

DRUGS (3)
  1. PROFENID [Concomitant]
  2. DURAGESIC-100 [Concomitant]
  3. AFINITOR [Suspect]
     Indication: RENAL CANCER
     Dosage: 5 MG, BID
     Route: 048
     Dates: start: 20101201, end: 20110125

REACTIONS (3)
  - BLOOD CHOLESTEROL INCREASED [None]
  - HYPERGLYCAEMIA [None]
  - DYSLIPIDAEMIA [None]
